FAERS Safety Report 12877274 (Version 1)
Quarter: 2016Q4

REPORT INFORMATION
  Report Type: Spontaneous
  Country: US (occurrence: US)
  Receive Date: 20161021
  Receipt Date: 20161021
  Transmission Date: 20170207
  Serious: Yes (Hospitalization)
  Sender: FDA-Public Use
  Company Number: None

PATIENT
  Sex: Male

DRUGS (1)
  1. DOFETILIDE 250MCG MAYNE PHARMA [Suspect]
     Active Substance: DOFETILIDE
     Route: 048
     Dates: start: 20160915

REACTIONS (3)
  - Condition aggravated [None]
  - Product substitution issue [None]
  - Hospitalisation [None]
